FAERS Safety Report 23014373 (Version 1)
Quarter: 2023Q4

REPORT INFORMATION
  Report Type: Spontaneous
  Country: US (occurrence: US)
  Receive Date: 20231002
  Receipt Date: 20231002
  Transmission Date: 20240109
  Serious: No
  Sender: FDA-Public Use
  Company Number: US-SANDOZ-SDZ2023US036200

PATIENT
  Sex: Female

DRUGS (19)
  1. COSENTYX [Suspect]
     Active Substance: SECUKINUMAB
     Indication: Psoriasis
     Route: 065
  2. COSENTYX [Suspect]
     Active Substance: SECUKINUMAB
     Indication: Psoriasis
     Route: 065
  3. COSENTYX [Suspect]
     Active Substance: SECUKINUMAB
     Indication: Palmoplantar pustulosis
  4. COSENTYX [Suspect]
     Active Substance: SECUKINUMAB
     Indication: Rash
  5. HALOBETASOL PROPIONATE [Suspect]
     Active Substance: HALOBETASOL PROPIONATE
     Indication: Psoriasis
     Dosage: UNK
     Route: 065
  6. HALOBETASOL PROPIONATE [Suspect]
     Active Substance: HALOBETASOL PROPIONATE
     Indication: Palmoplantar pustulosis
  7. HALOBETASOL PROPIONATE [Suspect]
     Active Substance: HALOBETASOL PROPIONATE
     Indication: Rash
  8. KETOCONAZOLE [Suspect]
     Active Substance: KETOCONAZOLE
     Indication: Psoriasis
     Dosage: UNK
     Route: 065
  9. KETOCONAZOLE [Suspect]
     Active Substance: KETOCONAZOLE
     Indication: Palmoplantar pustulosis
  10. KETOCONAZOLE [Suspect]
     Active Substance: KETOCONAZOLE
     Indication: Rash
  11. MUPIROCIN [Suspect]
     Active Substance: MUPIROCIN
     Indication: Psoriasis
     Dosage: UNK
     Route: 065
  12. MUPIROCIN [Suspect]
     Active Substance: MUPIROCIN
     Indication: Palmoplantar pustulosis
  13. MUPIROCIN [Suspect]
     Active Substance: MUPIROCIN
     Indication: Rash
  14. PREDNISONE [Suspect]
     Active Substance: PREDNISONE
     Indication: Psoriasis
     Dosage: UNK
     Route: 065
  15. PREDNISONE [Suspect]
     Active Substance: PREDNISONE
     Indication: Palmoplantar pustulosis
  16. PREDNISONE [Suspect]
     Active Substance: PREDNISONE
     Indication: Rash
  17. SULFADIAZINE [Suspect]
     Active Substance: SULFADIAZINE
     Indication: Psoriasis
     Dosage: UNK
     Route: 065
  18. SULFADIAZINE [Suspect]
     Active Substance: SULFADIAZINE
     Indication: Palmoplantar pustulosis
  19. SULFADIAZINE [Suspect]
     Active Substance: SULFADIAZINE
     Indication: Rash

REACTIONS (2)
  - Psoriasis [Unknown]
  - Therapeutic product effect incomplete [Unknown]
